FAERS Safety Report 17319705 (Version 1)
Quarter: 2020Q1

REPORT INFORMATION
  Report Type: Spontaneous
  Country: US (occurrence: US)
  Receive Date: 20200125
  Receipt Date: 20200125
  Transmission Date: 20200409
  Serious: Yes (Hospitalization, Other)
  Sender: FDA-Public Use
  Company Number: US-APNAR-000032

PATIENT
  Age: 13 Year
  Sex: Male
  Weight: 50 kg

DRUGS (4)
  1. PARACETAMOL [Concomitant]
     Active Substance: ACETAMINOPHEN
  2. PROPRANOLOL [Concomitant]
     Active Substance: PROPRANOLOL HYDROCHLORIDE
  3. BUPROPION. [Suspect]
     Active Substance: BUPROPION
  4. IBUPROFEN. [Concomitant]
     Active Substance: IBUPROFEN

REACTIONS (13)
  - Hallucination [Unknown]
  - Ventricular fibrillation [Recovered/Resolved]
  - Cardiac arrest [Unknown]
  - Mental disorder [Unknown]
  - Electrocardiogram QRS complex prolonged [Recovered/Resolved]
  - Tachypnoea [Unknown]
  - Unresponsive to stimuli [Unknown]
  - Agitation [Unknown]
  - Generalised tonic-clonic seizure [Recovered/Resolved]
  - Hypotension [Unknown]
  - Intentional overdose [Unknown]
  - Upper airway obstruction [Unknown]
  - Breath sounds abnormal [Unknown]
